FAERS Safety Report 20345084 (Version 2)
Quarter: 2022Q1

REPORT INFORMATION
  Report Type: Report from Study
  Country: DO (occurrence: DO)
  Receive Date: 20220118
  Receipt Date: 20220209
  Transmission Date: 20220424
  Serious: Yes (Hospitalization)
  Sender: FDA-Public Use
  Company Number: DO-NOVARTISPH-NVSC2021DO149319

PATIENT
  Age: 75 Year
  Sex: Female

DRUGS (1)
  1. HYDROCHLOROTHIAZIDE\VALSARTAN [Suspect]
     Active Substance: HYDROCHLOROTHIAZIDE\VALSARTAN
     Indication: Product used for unknown indication
     Dosage: 160/12.5 MG, SHE USED IT FOR 15 OR 6 YEARS
     Route: 065
     Dates: end: 201905

REACTIONS (3)
  - Phlebitis [Unknown]
  - Infarction [Unknown]
  - Cardiovascular disorder [Unknown]
